FAERS Safety Report 5583872-7 (Version None)
Quarter: 2008Q1

REPORT INFORMATION
  Report Type: 
  Country: None (occurrence: None)
  Receive Date: 20080108
  Receipt Date: 20071203
  Transmission Date: 20080703
  Serious: No
  Sender: FDA-Public Use
  Company Number: US-BAYER-200715389NA

PATIENT
  Age: 87 Year
  Sex: Female

DRUGS (3)
  1. ADALAT CC [Suspect]
     Dosage: TOTAL DAILY DOSE: 90 MG
     Route: 048
  2. ADALAT CC [Suspect]
     Dosage: TOTAL DAILY DOSE: 180 MG
     Route: 048
  3. BLOOD PRESSURE MEDICATION (NOS) [Concomitant]
     Indication: HYPERTENSION

REACTIONS (2)
  - ANGINA PECTORIS [None]
  - BLOOD PRESSURE INADEQUATELY CONTROLLED [None]
